FAERS Safety Report 6289032-9 (Version None)
Quarter: 2009Q3

REPORT INFORMATION
  Report Type: 
  Country: None (occurrence: None)
  Receive Date: 20090729
  Receipt Date: 20090722
  Transmission Date: 20100115
  Serious: Yes (Hospitalization)
  Sender: FDA-Public Use
  Company Number: PHHO2008DE10143

PATIENT
  Sex: Male
  Weight: 87 kg

DRUGS (3)
  1. RAD 666 RAD+TAB [Suspect]
     Indication: RENAL TRANSPLANT
     Dosage: 3MG/DAY
     Route: 048
     Dates: start: 20080211
  2. MYFORTIC [Suspect]
     Indication: RENAL TRANSPLANT
     Dosage: 720 MG/DAY
     Route: 048
     Dates: start: 20080211
  3. TACROLIMUS [Concomitant]
     Indication: RENAL TRANSPLANT
     Dosage: UNK
     Dates: start: 20041221

REACTIONS (4)
  - ALPHA 1 FOETOPROTEIN INCREASED [None]
  - APHTHOUS STOMATITIS [None]
  - HYPOPHAGIA [None]
  - WEIGHT DECREASED [None]
